FAERS Safety Report 18350179 (Version 21)
Quarter: 2025Q1

REPORT INFORMATION
  Report Type: Spontaneous
  Country: US (occurrence: US)
  Receive Date: 20201006
  Receipt Date: 20250320
  Transmission Date: 20250409
  Serious: No
  Sender: PFIZER
  Company Number: US-PFIZER INC-2020381976

PATIENT
  Age: 73 Year
  Sex: Male
  Weight: 90.718 kg

DRUGS (20)
  1. BRAFTOVI [Suspect]
     Active Substance: ENCORAFENIB
     Indication: Metastatic malignant melanoma
     Dosage: 450 MG, DAILY (6 CAPSULES, DAILY)
     Route: 048
     Dates: start: 20200612
  2. BRAFTOVI [Suspect]
     Active Substance: ENCORAFENIB
     Indication: Brain neoplasm malignant
     Dosage: 450 MG, DAILY (TAKE 6 CAPSULES DAILY)
     Route: 048
     Dates: start: 20230404
  3. BRAFTOVI [Suspect]
     Active Substance: ENCORAFENIB
     Dosage: 450 MG, DAILY
     Route: 048
     Dates: start: 20240418
  4. BRAFTOVI [Suspect]
     Active Substance: ENCORAFENIB
     Dosage: 450 MG, DAILY (6 CAPSULES, DAILY)
     Route: 048
  5. MEKTOVI [Suspect]
     Active Substance: BINIMETINIB
     Indication: Metastatic malignant melanoma
     Dosage: 45 MG, 2X/DAY (TAKE 3 TABLETS BY MOUTH TWICE A DAY)
     Route: 048
     Dates: start: 20200612
  6. MEKTOVI [Suspect]
     Active Substance: BINIMETINIB
     Indication: Brain neoplasm malignant
     Dosage: 45 MG, DAILY (TAKE 3 TABLETS DAILY)
     Route: 048
  7. MEKTOVI [Suspect]
     Active Substance: BINIMETINIB
     Dosage: 45 MG, 2X/DAY
     Route: 048
     Dates: start: 20240418
  8. MEKTOVI [Suspect]
     Active Substance: BINIMETINIB
     Dosage: 45 MG, 2X/DAY (TAKE 3 TABLETS BY MOUTH TWICE A DAY)
     Route: 048
  9. PREDNISONE [Concomitant]
     Active Substance: PREDNISONE
  10. HYDRALAZINE [Concomitant]
     Active Substance: HYDRALAZINE HYDROCHLORIDE
  11. ASPIRIN [Concomitant]
     Active Substance: ASPIRIN
  12. PANTOPRAZOLE [Concomitant]
     Active Substance: PANTOPRAZOLE
  13. AMLODIPINE [Concomitant]
     Active Substance: AMLODIPINE BESYLATE
  14. CARVEDILOL [Concomitant]
     Active Substance: CARVEDILOL
  15. FAMOTIDINE [Concomitant]
     Active Substance: FAMOTIDINE
  16. LOSARTAN [Concomitant]
     Active Substance: LOSARTAN
  17. POTASSIUM [Concomitant]
     Active Substance: POTASSIUM
  18. CALCIUM [Concomitant]
     Active Substance: CALCIUM
  19. SODIUM CHLORIDE [Concomitant]
     Active Substance: SODIUM CHLORIDE
  20. ALGELDRATE\SODIUM ALGINATE [Concomitant]
     Active Substance: ALGELDRATE\SODIUM ALGINATE

REACTIONS (5)
  - Blood pressure abnormal [Unknown]
  - Cardiac disorder [Unknown]
  - Muscular weakness [Unknown]
  - Brain fog [Unknown]
  - Off label use [Unknown]
